FAERS Safety Report 4973872-X (Version None)
Quarter: 2006Q2

REPORT INFORMATION
  Report Type: 
  Country: None (occurrence: None)
  Receive Date: 20060410
  Receipt Date: 20060331
  Transmission Date: 20061013
  Serious: Yes (Other)
  Sender: FDA-Public Use
  Company Number: CHPA2006US03553

PATIENT
  Age: 41 Year
  Sex: Male
  Weight: 165.5 kg

DRUGS (1)
  1. EXCEDRIN EXTRA STRENGTH (NCH)(CAFFEINE CITRATE, ACETYLSALICYLIC ACID, [Suspect]
     Indication: HEADACHE
     Dosage: 2-4 DF PRN ORAL
     Route: 048
     Dates: end: 20060301

REACTIONS (3)
  - DRUG ABUSER [None]
  - INCORRECT DOSE ADMINISTERED [None]
  - TINNITUS [None]
